FAERS Safety Report 5887825-0 (Version None)
Quarter: 2008Q3

REPORT INFORMATION
  Report Type: 
  Country: None (occurrence: None)
  Receive Date: 20080916
  Receipt Date: 20080903
  Transmission Date: 20090109
  Serious: No
  Sender: FDA-Public Use
  Company Number: 230066J07USA

PATIENT
  Age: 39 Year
  Sex: Male

DRUGS (3)
  1. REBIF [Suspect]
     Indication: MULTIPLE SCLEROSIS
     Dosage: 44 MCG, 3 IN 1 WEEKS, SUBCUTANEOUS
     Route: 058
     Dates: start: 20050125
  2. DESIPRAMINE HCL [Concomitant]
  3. NEURONTIN [Concomitant]

REACTIONS (1)
  - NO ADVERSE EVENT [None]
